FAERS Safety Report 9168744 (Version 1)
Quarter: 2013Q1

REPORT INFORMATION
  Report Type: Spontaneous
  Country: IT (occurrence: None)
  Receive Date: 20130308
  Receipt Date: 20130308
  Transmission Date: 20140127
  Serious: Yes (Hospitalization)
  Sender: FDA-Public Use
  Company Number: SYM-2013-01385

PATIENT
  Age: 51 Year
  Sex: Female

DRUGS (2)
  1. VASORETIC [Suspect]
     Indication: HYPERTENSION
     Route: 048
     Dates: start: 20120920, end: 20120920
  2. CORTICOSTEROID ANTIBIOTI C (CORTICOSTERIOD NOS (CORTICOSTEROID NOS) [Concomitant]

REACTIONS (5)
  - Nausea [None]
  - Vomiting [None]
  - Confusional state [None]
  - Drug intolerance [None]
  - Diarrhoea [None]
